FAERS Safety Report 7290733-4 (Version None)
Quarter: 2011Q1

REPORT INFORMATION
  Report Type: 
  Country: None (occurrence: None)
  Receive Date: 20110214
  Receipt Date: 20110208
  Transmission Date: 20110831
  Serious: Yes (Other)
  Sender: FDA-Public Use
  Company Number: JP-JNJFOC-20101203595

PATIENT
  Age: 60 Year
  Sex: Male

DRUGS (6)
  1. HIRNAMINE [Concomitant]
     Route: 065
  2. SERENACE [Concomitant]
     Route: 065
  3. IMPROMEN [Concomitant]
     Route: 048
  4. RISPERDAL [Suspect]
     Indication: PRODUCT USED FOR UNKNOWN INDICATION
     Route: 048
  5. RISPERDAL [Suspect]
     Route: 048
  6. RISPERDAL [Suspect]
     Route: 048

REACTIONS (3)
  - HYPOAESTHESIA [None]
  - HAEMATURIA [None]
  - TREMOR [None]
